FAERS Safety Report 12816531 (Version 2)
Quarter: 2016Q4

REPORT INFORMATION
  Report Type: Report from Study
  Country: JP (occurrence: JP)
  Receive Date: 20161005
  Receipt Date: 20161017
  Transmission Date: 20170207
  Serious: Yes (Other)
  Sender: FDA-Public Use
  Company Number: JP-B.I. PHARMACEUTICALS,INC./RIDGEFIELD-2015-BI-27662NB

PATIENT
  Age: 59 Year
  Sex: Male
  Weight: 59.7 kg

DRUGS (7)
  1. AFATINIB MALEATE [Concomitant]
     Active Substance: AFATINIB DIMALEATE
     Indication: PRODUCT USED FOR UNKNOWN INDICATION
     Dosage: NR
     Route: 065
  2. MINOCYCLINE HYDROCHLORIDE. [Concomitant]
     Active Substance: MINOCYCLINE HYDROCHLORIDE
     Indication: PROPHYLAXIS
     Dosage: NR
     Route: 065
  3. AFATINIB MALEATE [Concomitant]
     Active Substance: AFATINIB DIMALEATE
     Indication: PRODUCT USED FOR UNKNOWN INDICATION
     Dosage: NR
     Route: 065
  4. SODIUM ALGINATE [Concomitant]
     Active Substance: SODIUM ALGINATE
     Indication: PROPHYLAXIS
     Route: 065
  5. GILOTRIF [Suspect]
     Active Substance: AFATINIB
     Indication: LUNG ADENOCARCINOMA
     Route: 065
     Dates: start: 20150304, end: 20150415
  6. GILOTRIF [Suspect]
     Active Substance: AFATINIB
     Indication: LUNG ADENOCARCINOMA
     Route: 065
     Dates: start: 20150416, end: 20160204
  7. PREDNISOLONE. [Concomitant]
     Active Substance: PREDNISOLONE
     Indication: PRODUCT USED FOR UNKNOWN INDICATION
     Dosage: NR
     Route: 065

REACTIONS (5)
  - Paronychia [Recovered/Resolved]
  - Dermatitis acneiform [Recovered/Resolved]
  - Malignant neoplasm progression [Unknown]
  - Paronychia [Not Recovered/Not Resolved]
  - Diarrhoea [Recovered/Resolved]

NARRATIVE: CASE EVENT DATE: 20150415
